FAERS Safety Report 4277233-0 (Version None)
Quarter: 2004Q1

REPORT INFORMATION
  Report Type: 
  Country: None (occurrence: None)
  Receive Date: 20040120
  Receipt Date: 20040120
  Transmission Date: 20041129
  Serious: Yes (Life-Threatening, Hospitalization)
  Sender: FDA-Public Use
  Company Number: None

PATIENT
  Age: 49 Year
  Sex: Male
  Weight: 68.3 kg

DRUGS (2)
  1. LISINOPRIL [Suspect]
  2. NAPROXEN [Concomitant]

REACTIONS (1)
  - HYPERKALAEMIA [None]
